FAERS Safety Report 8200927-9 (Version None)
Quarter: 2012Q1

REPORT INFORMATION
  Report Type: 
  Country: None (occurrence: None)
  Receive Date: 20120312
  Receipt Date: 20110923
  Transmission Date: 20120608
  Serious: No
  Sender: FDA-Public Use
  Company Number: US-ABBOTT-11P-163-0857837-00

PATIENT
  Sex: Female
  Weight: 59.02 kg

DRUGS (2)
  1. LUPRON DEPOT [Suspect]
     Indication: ENDOMETRIOSIS
     Dates: start: 20110901
  2. NORETHINDRONE [Concomitant]
     Indication: HORMONE THERAPY
     Dates: start: 20110901

REACTIONS (3)
  - HOT FLUSH [None]
  - DYSPNOEA [None]
  - FEELING HOT [None]
